FAERS Safety Report 4536539-8 (Version None)
Quarter: 2004Q4

REPORT INFORMATION
  Report Type: 
  Country: None (occurrence: None)
  Receive Date: 20041220
  Receipt Date: 20041206
  Transmission Date: 20050328
  Serious: Yes (Hospitalization)
  Sender: FDA-Public Use
  Company Number: 2004106989

PATIENT
  Age: 83 Year
  Sex: Female

DRUGS (4)
  1. FLUCONAZOLE [Suspect]
     Indication: OROPHARYNGITIS FUNGAL
     Dates: start: 20040101, end: 20040101
  2. DIOVAN HCT [Suspect]
     Indication: HYPERTENSION
     Dates: end: 20040101
  3. TELITHROMYCIN (TELITHROMYCIN) [Concomitant]
  4. CEFOTAXIME SODIUM [Concomitant]

REACTIONS (6)
  - BRONCHITIS [None]
  - OEDEMA PERIPHERAL [None]
  - OROPHARYNGITIS FUNGAL [None]
  - PITTING OEDEMA [None]
  - RENAL FAILURE ACUTE [None]
  - RESPIRATORY FAILURE [None]
